FAERS Safety Report 6659882-5 (Version None)
Quarter: 2010Q1

REPORT INFORMATION
  Report Type: 
  Country: None (occurrence: None)
  Receive Date: 20100330
  Receipt Date: 20100330
  Transmission Date: 20100710
  Serious: Yes (Other)
  Sender: FDA-Public Use
  Company Number: None

PATIENT
  Sex: Female
  Weight: 68.0396 kg

DRUGS (1)
  1. NITROFURANTOIN [Suspect]
     Indication: CYSTITIS
     Dosage: 100MG 2 X A DAY PO
     Route: 048
     Dates: start: 20100325, end: 20100325

REACTIONS (5)
  - FEELING ABNORMAL [None]
  - GAIT DISTURBANCE [None]
  - HEADACHE [None]
  - MENTAL IMPAIRMENT [None]
  - SPEECH DISORDER [None]
